FAERS Safety Report 20131285 (Version 1)
Quarter: 2021Q4

REPORT INFORMATION
  Report Type: Spontaneous
  Country: US (occurrence: US)
  Receive Date: 20211130
  Receipt Date: 20211130
  Transmission Date: 20220303
  Serious: No
  Sender: FDA-Public Use
  Company Number: US-ELI_LILLY_AND_COMPANY-US202111012499

PATIENT

DRUGS (2)
  1. VERZENIO [Suspect]
     Active Substance: ABEMACICLIB
     Indication: Product used for unknown indication
     Dosage: 200 MG, UNKNOWN
     Route: 048
  2. VERZENIO [Suspect]
     Active Substance: ABEMACICLIB
     Dosage: UNK UNK, UNKNOWN (REDUCED DOSE)
     Route: 048

REACTIONS (1)
  - Diarrhoea [Unknown]
